FAERS Safety Report 4337256-X (Version None)
Quarter: 2004Q2

REPORT INFORMATION
  Report Type: 
  Country: None (occurrence: None)
  Receive Date: 20040413
  Receipt Date: 20040302
  Transmission Date: 20050107
  Serious: Yes (Other)
  Sender: FDA-Public Use
  Company Number: US-BRISTOL-MYERS SQUIBB COMPANY-12522413

PATIENT
  Age: 89 Year
  Sex: Male

DRUGS (9)
  1. COUMADIN [Suspect]
     Indication: KNEE OPERATION
     Route: 048
     Dates: start: 20030901
  2. SPIRONOLACTONE [Concomitant]
  3. COREG [Concomitant]
  4. LORTAB [Concomitant]
  5. LANOXIN [Concomitant]
  6. PAXIL [Concomitant]
  7. LASIX [Concomitant]
  8. COLACE [Concomitant]
  9. MULTI-VITAMIN [Concomitant]

REACTIONS (3)
  - INTERNATIONAL NORMALISED RATIO DECREASED [None]
  - SKIN LESION [None]
  - STAPHYLOCOCCAL INFECTION [None]
